FAERS Safety Report 25232265 (Version 2)
Quarter: 2025Q4

REPORT INFORMATION
  Report Type: Report from Study
  Country: US (occurrence: US)
  Receive Date: 20250423
  Receipt Date: 20251010
  Transmission Date: 20260118
  Serious: Yes (Other)
  Sender: ABBVIE
  Company Number: US-ABBVIE-6243313

PATIENT
  Age: 65 Year
  Sex: Female

DRUGS (3)
  1. SKYRIZI [Suspect]
     Active Substance: RISANKIZUMAB-RZAA
     Indication: Psoriatic arthropathy
     Dosage: TIME INTERVAL: TOTAL: WEEK 0?STRENGTH;150MG/ML
     Route: 058
     Dates: start: 20231215, end: 20231215
  2. SKYRIZI [Suspect]
     Active Substance: RISANKIZUMAB-RZAA
     Dosage: TIME INTERVAL: TOTAL: WEEK 4?STRENGTH;150MG/ML
     Route: 058
     Dates: start: 20240120, end: 20240120
  3. SKYRIZI [Suspect]
     Active Substance: RISANKIZUMAB-RZAA
     Dosage: STRENGTH;150MG/ML?FIRST ADMIN DATE: 2024
     Route: 058

REACTIONS (9)
  - Blood loss anaemia [Not Recovered/Not Resolved]
  - Syncope [Unknown]
  - Peripheral swelling [Unknown]
  - Pain in extremity [Unknown]
  - Neck pain [Not Recovered/Not Resolved]
  - Musculoskeletal stiffness [Unknown]
  - Onychomadesis [Unknown]
  - Drug ineffective [Unknown]
  - Back pain [Not Recovered/Not Resolved]

NARRATIVE: CASE EVENT DATE: 20231215
